FAERS Safety Report 7339964-5 (Version None)
Quarter: 2011Q1

REPORT INFORMATION
  Report Type: 
  Country: None (occurrence: None)
  Receive Date: 20110309
  Receipt Date: 20110307
  Transmission Date: 20110831
  Serious: No
  Sender: FDA-Public Use
  Company Number: US-PFIZER INC-2011049820

PATIENT
  Sex: Female
  Weight: 108.84 kg

DRUGS (3)
  1. LIPITOR [Concomitant]
     Indication: BLOOD CHOLESTEROL ABNORMAL
     Dosage: 20 MG, 1X/DAY
  2. DETROL LA [Suspect]
     Indication: URINARY INCONTINENCE
     Dosage: UNK
  3. NORVASC [Concomitant]
     Indication: CARDIAC DISORDER
     Dosage: 5 MG, 1X/DAY

REACTIONS (2)
  - POLLAKIURIA [None]
  - URINARY INCONTINENCE [None]
